FAERS Safety Report 5905470-5 (Version None)
Quarter: 2008Q4

REPORT INFORMATION
  Report Type: 
  Country: None (occurrence: None)
  Receive Date: 20081002
  Receipt Date: 20080926
  Transmission Date: 20090506
  Serious: Yes (Hospitalization)
  Sender: FDA-Public Use
  Company Number: JP-BAYER-200812263BYL

PATIENT
  Age: 68 Year
  Sex: Female
  Weight: 37 kg

DRUGS (6)
  1. CIPROXAN-I.V. [Suspect]
     Indication: PNEUMONIA
     Dosage: TOTAL DAILY DOSE: 600 MG  UNIT DOSE: 300 MG
     Route: 041
     Dates: start: 20080722, end: 20080723
  2. ACTIT [Concomitant]
     Route: 041
     Dates: start: 20080722, end: 20080723
  3. THEO-DUR [Concomitant]
     Dosage: TOTAL DAILY DOSE: 200 MG
     Route: 048
  4. KIPRES [Concomitant]
     Dosage: AS USED: 10 MG
     Route: 048
  5. MUCOSTA [Concomitant]
     Dosage: TOTAL DAILY DOSE: 300 MG
     Route: 048
  6. ENSURE LIQUID [Concomitant]
     Dosage: TOTAL DAILY DOSE: 1000 ML
     Route: 048

REACTIONS (2)
  - GENERALISED ERYTHEMA [None]
  - WHEEZING [None]
